FAERS Safety Report 13968739 (Version 1)
Quarter: 2017Q3

REPORT INFORMATION
  Report Type: Spontaneous
  Country: JP (occurrence: JP)
  Receive Date: 20170914
  Receipt Date: 20170914
  Transmission Date: 20171128
  Serious: Yes (Other)
  Sender: FDA-Public Use
  Company Number: JP-RECORDATI RARE DISEASES-JP-R13005-17-00209

PATIENT
  Sex: Female

DRUGS (1)
  1. INDOCIN [Suspect]
     Active Substance: INDOMETHACIN
     Indication: PRODUCT USED FOR UNKNOWN INDICATION
     Route: 065

REACTIONS (2)
  - Intraventricular haemorrhage neonatal [Unknown]
  - Bronchopulmonary dysplasia [Recovering/Resolving]

NARRATIVE: CASE EVENT DATE: 20160525
